FAERS Safety Report 4911187-6 (Version None)
Quarter: 2006Q1

REPORT INFORMATION
  Report Type: 
  Country: None (occurrence: None)
  Receive Date: 20060209
  Receipt Date: 20060126
  Transmission Date: 20060701
  Serious: Yes (Hospitalization)
  Sender: FDA-Public Use
  Company Number: IT200601004940

PATIENT
  Age: 42 Year
  Sex: Male
  Weight: 65 kg

DRUGS (5)
  1. ZYPREXA [Suspect]
     Indication: SCHIZOPHRENIA
     Dosage: 20 MG, DAILY (1/D), ORAL
     Route: 048
     Dates: start: 20000101
  2. FLUFENAZIN (FLUPHENAZINE HYDROCHLORIDE) [Concomitant]
  3. ZUCLOPENTHIXOL (ZUCLOPENTHIXOL) [Concomitant]
  4. LORAZEPAM [Concomitant]
  5. MINIAS (LORMETAZEPAM) [Concomitant]

REACTIONS (5)
  - ENURESIS [None]
  - HYDRONEPHROSIS [None]
  - NEUROGENIC BLADDER [None]
  - POLYDIPSIA [None]
  - PSYCHOTIC DISORDER [None]
